FAERS Safety Report 5454667-X (Version None)
Quarter: 2007Q3

REPORT INFORMATION
  Report Type: 
  Country: None (occurrence: None)
  Receive Date: 20070917
  Receipt Date: 20060816
  Transmission Date: 20080115
  Serious: No
  Sender: FDA-Public Use
  Company Number: US-ASTRAZENECA-2006UW16370

PATIENT
  Sex: Male

DRUGS (7)
  1. SEROQUEL [Suspect]
     Route: 048
  2. AMBIEN [Concomitant]
  3. ROSARUM [Concomitant]
  4. SONATA [Concomitant]
  5. ZANAFLEX [Concomitant]
  6. CYMBALTA [Concomitant]
  7. LUNESTA [Concomitant]

REACTIONS (2)
  - ADVERSE DRUG REACTION [None]
  - DRUG INEFFECTIVE [None]
